FAERS Safety Report 6113221-7 (Version None)
Quarter: 2009Q1

REPORT INFORMATION
  Report Type: 
  Country: None (occurrence: None)
  Receive Date: 20090312
  Receipt Date: 20090309
  Transmission Date: 20090719
  Serious: Yes (Hospitalization)
  Sender: FDA-Public Use
  Company Number: US-JNJFOC-20090302311

PATIENT
  Sex: Male
  Weight: 88.45 kg

DRUGS (3)
  1. DURAGESIC-100 [Suspect]
     Route: 062
  2. DURAGESIC-100 [Suspect]
     Indication: BACK PAIN
     Route: 062
  3. DURAGESIC-100 [Suspect]
     Indication: SPINAL OSTEOARTHRITIS
     Route: 062

REACTIONS (9)
  - ANGIOPATHY [None]
  - AORTIC VALVE DISEASE [None]
  - CHEST PAIN [None]
  - DEHYDRATION [None]
  - DYSPNOEA [None]
  - INAPPROPRIATE SCHEDULE OF DRUG ADMINISTRATION [None]
  - SPINAL OSTEOARTHRITIS [None]
  - THERAPY CESSATION [None]
  - WITHDRAWAL SYNDROME [None]
